FAERS Safety Report 21138190 (Version 2)
Quarter: 2022Q3

REPORT INFORMATION
  Report Type: Spontaneous
  Country: GB (occurrence: GB)
  Receive Date: 20220727
  Receipt Date: 20220801
  Transmission Date: 20221026
  Serious: Yes (Other)
  Sender: FDA-Public Use
  Company Number: GB-MHRA-MED-202207222305559740-GQSNH

PATIENT
  Age: 25 Year
  Sex: Female

DRUGS (3)
  1. DEPO-PROVERA [Suspect]
     Active Substance: MEDROXYPROGESTERONE ACETATE
     Indication: Menstrual disorder
     Dosage: 150 MG
     Dates: start: 20220507
  2. TOPIRAMATE [Concomitant]
     Active Substance: TOPIRAMATE
     Indication: Idiopathic intracranial hypertension
     Dosage: UNKNOWN
     Dates: start: 20220507
  3. ANTIHISTAMINE ALLERGY RELIEF [Concomitant]
     Indication: Hypersensitivity
     Dosage: DAILY

REACTIONS (3)
  - Dyspareunia [Not Recovered/Not Resolved]
  - Vulvovaginal dryness [Not Recovered/Not Resolved]
  - Off label use [Unknown]

NARRATIVE: CASE EVENT DATE: 20220507
